FAERS Safety Report 7789031-1 (Version None)
Quarter: 2011Q3

REPORT INFORMATION
  Report Type: 
  Country: None (occurrence: None)
  Receive Date: 20110930
  Receipt Date: 20110920
  Transmission Date: 20111222
  Serious: Yes (Hospitalization)
  Sender: FDA-Public Use
  Company Number: JP-JNJFOC-20110909639

PATIENT
  Age: 47 Year
  Sex: Male
  Weight: 62 kg

DRUGS (2)
  1. REMICADE [Suspect]
     Indication: COLITIS ULCERATIVE
     Dosage: SEVENTH DOSE
     Route: 042
     Dates: start: 20110816
  2. REMICADE [Suspect]
     Dosage: FIRST DOSE
     Route: 042
     Dates: start: 20101122

REACTIONS (2)
  - HAEMORRHAGE SUBCUTANEOUS [None]
  - GENERALISED OEDEMA [None]
